FAERS Safety Report 11620601 (Version 2)
Quarter: 2017Q3

REPORT INFORMATION
  Report Type: Spontaneous
  Country: GB (occurrence: GB)
  Receive Date: 20151012
  Receipt Date: 20170727
  Transmission Date: 20171127
  Serious: Yes (Death, Life-Threatening, Hospitalization, Disabling)
  Sender: FDA-Public Use
  Company Number: GB-MYLANLABS-2015M1034417

PATIENT

DRUGS (10)
  1. ASPIRIN                            /00002701/ [Suspect]
     Active Substance: ASPIRIN
     Indication: ANTIPLATELET THERAPY
     Dosage: LOADING DOSE OF 300 MG, FOLLOWED BY
     Route: 048
  2. ASPIRIN                            /00002701/ [Suspect]
     Active Substance: ASPIRIN
     Dosage: FOLLOWED BY 75 MG
     Route: 048
  3. ASPIRIN                            /00002701/ [Suspect]
     Active Substance: ASPIRIN
     Dosage: MINIMUM OF 12 MONTHS AFTER (75 MG)
  4. CLOPIDOGREL [Suspect]
     Active Substance: CLOPIDOGREL BISULFATE
     Indication: ANTIPLATELET THERAPY
     Dosage: 300 MG, UNK (MINIMUM OF 12 MONTHS)
     Route: 048
  5. CLOPIDOGREL [Suspect]
     Active Substance: CLOPIDOGREL BISULFATE
     Indication: ACUTE MYOCARDIAL INFARCTION
     Dosage: 75 MG, UNK (MINIMUM OF 12 MONTHS)
     Route: 048
  6. FONDAPARINUX MYLAN [Suspect]
     Active Substance: FONDAPARINUX
     Indication: ACUTE MYOCARDIAL INFARCTION
     Dosage: 2.5 MG
     Route: 058
  7. CLOPIDOGREL [Suspect]
     Active Substance: CLOPIDOGREL BISULFATE
     Dosage: 75 MG, UNK (MINIMUM OF 12 MONTHS)
  8. FUROSEMIDE. [Concomitant]
     Active Substance: FUROSEMIDE
     Indication: PULMONARY OEDEMA
     Route: 042
  9. ASPIRIN                            /00002701/ [Suspect]
     Active Substance: ASPIRIN
     Dosage: 150 MG, UNK
  10. CLOPIDOGREL [Suspect]
     Active Substance: CLOPIDOGREL BISULFATE
     Dosage: 150 MG, UNK (MINIMUM OF 12 MONTHS)

REACTIONS (4)
  - Extradural haematoma [Not Recovered/Not Resolved]
  - Decubitus ulcer [Unknown]
  - Sepsis [Fatal]
  - Spinal cord compression [Not Recovered/Not Resolved]
